FAERS Safety Report 19713617 (Version 3)
Quarter: 2021Q3

REPORT INFORMATION
  Report Type: Report from Study
  Country: None (occurrence: ES)
  Receive Date: 20210818
  Receipt Date: 20210820
  Transmission Date: 20211014
  Serious: Yes (Other)
  Sender: FDA-Public Use
  Company Number: ES-ABBVIE-21K-144-4018073-00

PATIENT
  Age: 68 Year
  Sex: Male
  Weight: 100 kg

DRUGS (6)
  1. ROLPRYNA [Concomitant]
     Active Substance: ROPINIROLE HYDROCHLORIDE
     Dosage: DOSE SUPPRESSED?ONLY IN MORNING
     Route: 048
     Dates: start: 202106, end: 20210815
  2. ROLPRYNA [Concomitant]
     Active Substance: ROPINIROLE HYDROCHLORIDE
     Dosage: AT NIGHT ONLY
     Route: 048
     Dates: start: 202108
  3. DUODOPA [Suspect]
     Active Substance: CARBIDOPA\LEVODOPA
     Indication: PARKINSON^S DISEASE
     Route: 050
     Dates: start: 20180322
  4. ROLPRYNA [Concomitant]
     Active Substance: ROPINIROLE HYDROCHLORIDE
     Indication: PRODUCT USED FOR UNKNOWN INDICATION
     Dosage: DOSE SUPPRESSED?ONLY IN MORNING
     Route: 048
     Dates: end: 202002
  5. ROLPRYNA [Concomitant]
     Active Substance: ROPINIROLE HYDROCHLORIDE
     Dosage: MORNING AND AT NIGHT
     Route: 048
     Dates: start: 202002
  6. DUODOPA [Suspect]
     Active Substance: CARBIDOPA\LEVODOPA

REACTIONS (7)
  - Gait disturbance [Not Recovered/Not Resolved]
  - Freezing phenomenon [Not Recovered/Not Resolved]
  - Drug abuse [Not Recovered/Not Resolved]
  - Drug ineffective [Unknown]
  - Mydriasis [Unknown]
  - Somnolence [Unknown]
  - Hallucination [Recovered/Resolved]

NARRATIVE: CASE EVENT DATE: 202012
